FAERS Safety Report 25919998 (Version 1)
Quarter: 2025Q4

REPORT INFORMATION
  Report Type: Spontaneous
  Country: US (occurrence: None)
  Receive Date: 20251010
  Receipt Date: 20251010
  Transmission Date: 20260118
  Serious: No
  Sender: FDA-CTU
  Company Number: None

PATIENT
  Sex: Female

DRUGS (1)
  1. LENALIDOMIDE [Suspect]
     Active Substance: LENALIDOMIDE
     Indication: Plasma cell myeloma
     Dosage: 15 MG : 1 TIME A DAY FOR 21 DAYS ON THEN 7 DAYS OFF ORAL?
     Route: 048
     Dates: start: 20241217

REACTIONS (1)
  - Transient ischaemic attack [None]
